FAERS Safety Report 12476079 (Version 1)
Quarter: 2016Q2

REPORT INFORMATION
  Report Type: Spontaneous
  Country: VE (occurrence: VE)
  Receive Date: 20160617
  Receipt Date: 20160617
  Transmission Date: 20160815
  Serious: Yes (Hospitalization, Other)
  Sender: FDA-Public Use
  Company Number: PHHY2016VE083189

PATIENT
  Age: 73 Year
  Sex: Female

DRUGS (9)
  1. PLAVIX [Concomitant]
     Active Substance: CLOPIDOGREL BISULFATE
     Indication: CARDIAC DISORDER
     Dosage: 75 MG, QD
     Route: 065
     Dates: start: 2014
  2. SPIRIVA [Concomitant]
     Active Substance: TIOTROPIUM BROMIDE MONOHYDRATE
     Indication: LUNG DISORDER
     Dosage: 1 DF, QD
     Route: 065
  3. VALSARTAN. [Concomitant]
     Active Substance: VALSARTAN
     Indication: CARDIAC DISORDER
     Dosage: 80 MG, QD
     Route: 065
     Dates: start: 2014
  4. DOMPERIDONE [Concomitant]
     Active Substance: DOMPERIDONE
     Indication: GASTROOESOPHAGEAL REFLUX DISEASE
     Dosage: 10 MG, QD
     Route: 065
     Dates: start: 2014
  5. AMIODARONE [Concomitant]
     Active Substance: AMIODARONE
     Indication: CARDIAC DISORDER
     Dosage: 100 MG, QD
     Route: 065
     Dates: start: 2014
  6. AIRON [Concomitant]
     Indication: LUNG DISORDER
     Dosage: 10 MG, QD
     Route: 065
  7. ONBREZ [Suspect]
     Active Substance: INDACATEROL
     Indication: LUNG DISORDER
     Dosage: 300 UG, QD
     Route: 055
  8. PANTOPRAZOLE [Concomitant]
     Active Substance: PANTOPRAZOLE SODIUM
     Indication: PRODUCT USED FOR UNKNOWN INDICATION
     Dosage: 40 MG, QD
     Route: 065
  9. GALVUS [Suspect]
     Active Substance: VILDAGLIPTIN
     Indication: BLOOD GLUCOSE INCREASED
     Dosage: 50 MG, QD
     Route: 065
     Dates: start: 2014

REACTIONS (6)
  - Urinary tract infection [Recovered/Resolved]
  - Blood pressure decreased [Recovered/Resolved]
  - Abasia [Recovered/Resolved]
  - Osteoarthritis [Recovered/Resolved]
  - Respiratory disorder [Recovered/Resolved]
  - Renal disorder [Recovered/Resolved]

NARRATIVE: CASE EVENT DATE: 201511
